FAERS Safety Report 11038487 (Version 1)
Quarter: 2015Q2

REPORT INFORMATION
  Report Type: Report from Study
  Country: US (occurrence: US)
  Receive Date: 20150416
  Receipt Date: 20150416
  Transmission Date: 20150821
  Serious: Yes (Death, Hospitalization, Other)
  Sender: FDA-Public Use
  Company Number: US-GILEAD-2015-0133677

PATIENT
  Age: 52 Year
  Sex: Female

DRUGS (1)
  1. IDELALISIB [Suspect]
     Active Substance: IDELALISIB
     Indication: MALIGNANT MAST CELL NEOPLASM
     Dosage: 150 MG, BID
     Route: 048
     Dates: start: 201408, end: 20141203

REACTIONS (4)
  - Death [Fatal]
  - Clostridium difficile infection [Unknown]
  - Liver function test abnormal [Recovered/Resolved]
  - Pain [Unknown]

NARRATIVE: CASE EVENT DATE: 2014
